FAERS Safety Report 17518169 (Version 1)
Quarter: 2020Q1

REPORT INFORMATION
  Report Type: Spontaneous
  Country: FR (occurrence: FR)
  Receive Date: 20200309
  Receipt Date: 20200309
  Transmission Date: 20200409
  Serious: Yes (Death)
  Sender: FDA-Public Use
  Company Number: FR-BAYER-2020-035175

PATIENT
  Age: 18 Year
  Sex: Male
  Weight: 56 kg

DRUGS (10)
  1. CIFLOX 750 MG [Suspect]
     Active Substance: CIPROFLOXACIN
     Indication: PNEUMONIA PSEUDOMONAL
     Dosage: 1500 MG, QD
     Route: 048
     Dates: start: 20200102, end: 20200105
  2. ORKAMBI [Concomitant]
     Active Substance: IVACAFTOR\LUMACAFTOR
     Dosage: UNK
  3. TOBI PODHALER [Suspect]
     Active Substance: TOBRAMYCIN
     Indication: PNEUMONIA PSEUDOMONAL
     Dosage: 2 DF, QD
     Route: 055
     Dates: start: 20200102, end: 20200105
  4. CREON [Concomitant]
     Active Substance: PANCRELIPASE AMYLASE\PANCRELIPASE LIPASE\PANCRELIPASE PROTEASE
     Dosage: UNK
  5. NASONEX [Concomitant]
     Active Substance: MOMETASONE FUROATE
     Dosage: UNK
  6. TOCO [Concomitant]
     Active Substance: .ALPHA.-TOCOPHEROL ACETATE, D-
     Dosage: UNK
  7. MOPRAL [OMEPRAZOLE MAGNESIUM] [Concomitant]
     Active Substance: OMEPRAZOLE MAGNESIUM
     Dosage: UNK
  8. DELURSAN [Concomitant]
     Active Substance: URSODIOL
     Dosage: UNK
  9. VITAMIN K [Concomitant]
     Active Substance: PHYTONADIONE
     Dosage: UNK
  10. A 313 [Concomitant]
     Active Substance: RETINOL
     Dosage: UNK

REACTIONS (1)
  - Hypoglycaemia [Fatal]

NARRATIVE: CASE EVENT DATE: 20200102
